FAERS Safety Report 12181201 (Version 1)
Quarter: 2016Q1

REPORT INFORMATION
  Report Type: Spontaneous
  Country: US (occurrence: US)
  Receive Date: 20160315
  Receipt Date: 20160315
  Transmission Date: 20160526
  Serious: Yes (Hospitalization)
  Sender: FDA-Public Use
  Company Number: US-BAYER-2016-050318

PATIENT
  Age: 73 Year
  Sex: Female
  Weight: 53.51 kg

DRUGS (1)
  1. CORICIDIN HBP COUGH AND COLD [Suspect]
     Active Substance: CHLORPHENIRAMINE MALEATE\DEXTROMETHORPHAN HYDROBROMIDE
     Dosage: UNK
     Dates: start: 2014

REACTIONS (1)
  - Swollen tongue [None]

NARRATIVE: CASE EVENT DATE: 2014
